FAERS Safety Report 10549911 (Version 3)
Quarter: 2015Q2

REPORT INFORMATION
  Report Type: Spontaneous
  Country: US (occurrence: None)
  Receive Date: 20141020
  Receipt Date: 20150420
  Transmission Date: 20150821
  Serious: No
  Sender: FDA-Public Use
  Company Number: AEGR000722

PATIENT
  Age: 75 Year
  Sex: Female
  Weight: 71.2 kg

DRUGS (9)
  1. VITAMIN D3 [Concomitant]
     Active Substance: CHOLECALCIFEROL
  2. WARFARIN (WARFARIN SODIUM) [Concomitant]
  3. VITAMIN B-12 (CYANOCOBALAMIN) [Concomitant]
  4. JUXTAPID [Suspect]
     Active Substance: LOMITAPIDE MESYLATE
     Indication: HYPERCHOLESTEROLAEMIA
     Dates: start: 20140619
  5. ZYRTEC [Concomitant]
     Active Substance: CETIRIZINE HYDROCHLORIDE
  6. OMEGA 3 6 9  (OMEGA 9 FATTY ACIDS, OMEGA-3 FATTY ACIDS, OMEGA-6 FATTY ACIDS) [Concomitant]
  7. VITAMIN E (TOCOPHERYL ACETATE) [Concomitant]
  8. SPIRONOLACTONE. [Concomitant]
     Active Substance: SPIRONOLACTONE
  9. LOSARTAN (LOSARTAN POTASSIUM) [Concomitant]

REACTIONS (4)
  - High density lipoprotein decreased [None]
  - Off label use [None]
  - Flatulence [None]
  - Weight decreased [None]

NARRATIVE: CASE EVENT DATE: 201406
